FAERS Safety Report 12965471 (Version 1)
Quarter: 2016Q4

REPORT INFORMATION
  Report Type: Report from Study
  Country: BR (occurrence: BR)
  Receive Date: 20161122
  Receipt Date: 20161122
  Transmission Date: 20170207
  Serious: Yes (Other)
  Sender: FDA-Public Use
  Company Number: BR-JNJFOC-20161120291

PATIENT
  Age: 50 Year
  Sex: Male
  Weight: 110 kg

DRUGS (1)
  1. SIMPONI [Suspect]
     Active Substance: GOLIMUMAB
     Indication: ANKYLOSING SPONDYLITIS
     Route: 058
     Dates: start: 20160921

REACTIONS (1)
  - Mumps [Recovering/Resolving]

NARRATIVE: CASE EVENT DATE: 20161110
